FAERS Safety Report 19953868 (Version 1)
Quarter: 2021Q4

REPORT INFORMATION
  Report Type: Spontaneous
  Country: US (occurrence: US)
  Receive Date: 20211013
  Receipt Date: 20211013
  Transmission Date: 20220303
  Serious: No
  Sender: FDA-Public Use
  Company Number: US-PFIZER INC-2021615434

PATIENT
  Age: 27 Year
  Sex: Female
  Weight: 59 kg

DRUGS (9)
  1. CLINDAMYCIN [Suspect]
     Active Substance: CLINDAMYCIN
     Dosage: UNK
     Dates: start: 20210417, end: 202104
  2. DARAPRIM [Suspect]
     Active Substance: PYRIMETHAMINE
     Indication: Toxoplasmosis
     Dosage: 75 MG, 1X/DAY
     Route: 048
     Dates: start: 20210417, end: 2021
  3. LEUCOVORIN [Concomitant]
     Active Substance: LEUCOVORIN
  4. GABAPENTIN [Concomitant]
     Active Substance: GABAPENTIN
  5. MEGACE [Concomitant]
     Active Substance: MEGESTROL ACETATE
  6. REMERON [Concomitant]
     Active Substance: MIRTAZAPINE
  7. PROMETHAZINE [Concomitant]
     Active Substance: PROMETHAZINE HYDROCHLORIDE
  8. RITALIN [Concomitant]
     Active Substance: METHYLPHENIDATE HYDROCHLORIDE
  9. GEODON [Concomitant]
     Active Substance: ZIPRASIDONE HYDROCHLORIDE\ZIPRASIDONE MESYLATE

REACTIONS (2)
  - Nausea [Unknown]
  - Fatigue [Unknown]
